FAERS Safety Report 7412021-5 (Version None)
Quarter: 2011Q2

REPORT INFORMATION
  Report Type: 
  Country: None (occurrence: None)
  Receive Date: 20110413
  Receipt Date: 20110212
  Transmission Date: 20111010
  Serious: Yes (Other)
  Sender: FDA-Public Use
  Company Number: CN-CELGENEUS-035-20785-11022185

PATIENT

DRUGS (5)
  1. THALIDOMIDE [Suspect]
     Indication: GASTRIC CANCER
     Dosage: 200 MILLIGRAM
     Route: 048
  2. IRINOTECAN [Suspect]
     Indication: GASTRIC CANCER
     Route: 041
  3. FLUOROURACIL [Suspect]
     Indication: GASTRIC CANCER
     Route: 051
  4. FLUOROURACIL [Suspect]
     Route: 041
  5. CF [Suspect]
     Indication: GASTRIC CANCER
     Route: 041

REACTIONS (10)
  - LIVER DISORDER [None]
  - DIARRHOEA [None]
  - CHOLINERGIC SYNDROME [None]
  - VOMITING [None]
  - THROMBOCYTOPENIA [None]
  - HAEMOGLOBIN DECREASED [None]
  - LEUKOPENIA [None]
  - NAUSEA [None]
  - GASTRIC CANCER [None]
  - STOMATITIS [None]
